FAERS Safety Report 24339628 (Version 1)
Quarter: 2024Q3

REPORT INFORMATION
  Report Type: Spontaneous
  Country: US (occurrence: None)
  Receive Date: 20240918
  Receipt Date: 20240918
  Transmission Date: 20241017
  Serious: Yes (Other)
  Sender: Public
  Company Number: None

PATIENT
  Age: 61 Year
  Sex: 0
  Weight: 87.5 kg

DRUGS (6)
  1. RIMEGEPANT SULFATE [Suspect]
     Active Substance: RIMEGEPANT SULFATE
     Indication: Migraine
     Dosage: OTHER FREQUENCY : EVERY OTHER DAY;?
     Route: 048
     Dates: start: 20240624, end: 20240831
  2. LEVOTHYROXINE [Concomitant]
     Active Substance: LEVOTHYROXINE\LEVOTHYROXINE SODIUM
  3. ONABOTULINUMTOXINA [Concomitant]
     Active Substance: ONABOTULINUMTOXINA
  4. RABEPRAZOLE [Concomitant]
     Active Substance: RABEPRAZOLE
  5. ROSUVASTATIN [Concomitant]
     Active Substance: ROSUVASTATIN\ROSUVASTATIN CALCIUM
  6. methotrexate 15mg PO weekly [Concomitant]

REACTIONS (1)
  - Syncope [None]
